FAERS Safety Report 20740592 (Version 2)
Quarter: 2022Q2

REPORT INFORMATION
  Report Type: Other
  Country: JP (occurrence: JP)
  Receive Date: 20220422
  Receipt Date: 20220428
  Transmission Date: 20220720
  Serious: Yes (Hospitalization)
  Sender: FDA-Public Use
  Company Number: JP-CHUGAI-2021017167

PATIENT
  Age: 57 Year
  Sex: Female
  Weight: 50.8 kg

DRUGS (3)
  1. ATEZOLIZUMAB [Suspect]
     Active Substance: ATEZOLIZUMAB
     Indication: Lung adenocarcinoma
     Dosage: MOST RECENT DOSE ON 24/NOV/2021
     Route: 041
     Dates: start: 20210701
  2. CARBOPLATIN [Concomitant]
     Active Substance: CARBOPLATIN
     Indication: Lung adenocarcinoma
     Dosage: 420 MILLIGRAM
     Route: 041
     Dates: start: 20210701
  3. PACLITAXEL [Concomitant]
     Active Substance: PACLITAXEL
     Indication: Lung adenocarcinoma
     Dosage: 140 MILLIGRAM
     Route: 041
     Dates: start: 20210701

REACTIONS (5)
  - Pyrexia [Recovering/Resolving]
  - Malaise [Recovering/Resolving]
  - C-reactive protein increased [Recovering/Resolving]
  - Lymphangiosis carcinomatosa [Unknown]
  - Dyspnoea exertional [Recovered/Resolved]

NARRATIVE: CASE EVENT DATE: 20210714
